FAERS Safety Report 4551898-8 (Version None)
Quarter: 2005Q1

REPORT INFORMATION
  Report Type: 
  Country: None (occurrence: None)
  Receive Date: 20050110
  Receipt Date: 20041228
  Transmission Date: 20050727
  Serious: Yes (Other)
  Sender: FDA-Public Use
  Company Number: 2004104775

PATIENT
  Age: 44 Year
  Sex: Male
  Weight: 76 kg

DRUGS (8)
  1. VIAGRA [Suspect]
     Indication: ILL-DEFINED DISORDER
     Dosage: 50 MG (50 MG, 1 IN 1 D),ORAL
     Route: 048
     Dates: start: 20031020, end: 20031130
  2. CELECOXB (CELECOXIB) [Concomitant]
  3. MONTELUKAST (MONTELUKAST) [Concomitant]
  4. CETIRIZINE (CETIRIXINE) [Concomitant]
  5. PIRBUTEROL ACETATE (PIRBUTEROL ACETATE) [Concomitant]
  6. BUFRDONIDE (BUDESONIDE) [Concomitant]
  7. FENOFIBRATE [Concomitant]
  8. ALLOPURINOL [Concomitant]

REACTIONS (3)
  - HEADACHE [None]
  - OCULAR HYPERAEMIA [None]
  - ROSACEA [None]
